FAERS Safety Report 11874294 (Version 1)
Quarter: 2015Q4

REPORT INFORMATION
  Report Type: Spontaneous
  Country: DE (occurrence: DE)
  Receive Date: 20151229
  Receipt Date: 20151229
  Transmission Date: 20160305
  Serious: Yes (Death, Other)
  Sender: FDA-Public Use
  Company Number: DE-AUROBINDO-AUR-APL-2015-11693

PATIENT
  Age: 39 Year
  Sex: Male

DRUGS (4)
  1. AMISULPRIDE [Concomitant]
     Active Substance: AMISULPRIDE
     Indication: PRODUCT USED FOR UNKNOWN INDICATION
     Route: 065
  2. ARIPIPRAZOLE. [Suspect]
     Active Substance: ARIPIPRAZOLE
     Indication: PRODUCT USED FOR UNKNOWN INDICATION
     Dosage: 1 X EVENINGS 5 OR 10 MG, THEN MORNINGS 10 MG AND EVENINGS 5 MG
     Route: 065
     Dates: start: 20150502
  3. RAMIPRIL. [Concomitant]
     Active Substance: RAMIPRIL
     Indication: HYPERTENSION
     Dosage: MORNING
     Route: 065
  4. BISOHEXAL [Concomitant]
     Active Substance: BISOPROLOL FUMARATE
     Indication: HYPERTENSION
     Route: 065

REACTIONS (10)
  - Apathy [Unknown]
  - Asthenia [Unknown]
  - Sleep disorder [Unknown]
  - Completed suicide [Fatal]
  - Depression [Unknown]
  - Decreased appetite [Unknown]
  - Sweat gland disorder [Unknown]
  - Breast pain [Unknown]
  - Retching [Unknown]
  - Lip disorder [Unknown]

NARRATIVE: CASE EVENT DATE: 20150913
